FAERS Safety Report 5191282-X (Version None)
Quarter: 2006Q4

REPORT INFORMATION
  Report Type: 
  Country: None (occurrence: None)
  Receive Date: 20061219
  Receipt Date: 20061219
  Transmission Date: 20070319
  Serious: Yes (Hospitalization, Other)
  Sender: FDA-Public Use
  Company Number: None

PATIENT
  Age: 23 Year
  Sex: Male

DRUGS (9)
  1. INVANZ [Suspect]
     Indication: WOUND
     Dosage: 1 GRAM Q24HRS IV
     Route: 042
     Dates: start: 20061106, end: 20061110
  2. LACATATED RINGERS [Concomitant]
  3. PERCOCET [Concomitant]
  4. MORPHINE [Concomitant]
  5. ONDANSETRON [Concomitant]
  6. ZOLPIDEM TARTRATE [Concomitant]
  7. DIPHENHYDRAMINE HCL [Concomitant]
  8. MILK OF MAGNESIA [Concomitant]
  9. ENOXAPARIN SODIUM [Concomitant]

REACTIONS (1)
  - PYREXIA [None]
